FAERS Safety Report 13922227 (Version 6)
Quarter: 2017Q4

REPORT INFORMATION
  Report Type: Report from Study
  Country: CH (occurrence: CH)
  Receive Date: 20170830
  Receipt Date: 20171115
  Transmission Date: 20180320
  Serious: Yes (Hospitalization, Other)
  Sender: FDA-Public Use
  Company Number: CH-BRISTOL-MYERS SQUIBB COMPANY-BMS-2017-073233

PATIENT
  Age: 60 Year
  Sex: Male
  Weight: 92.4 kg

DRUGS (3)
  1. BLINDED IPILIMUMAB [Suspect]
     Active Substance: IPILIMUMAB
     Indication: SMALL CELL LUNG CANCER EXTENSIVE STAGE
     Dosage: 100 MG, UNK
     Route: 042
     Dates: start: 20170626, end: 20170724
  2. BLINDED PLACEBO [Suspect]
     Active Substance: INVESTIGATIONAL PRODUCT
     Indication: SMALL CELL LUNG CANCER EXTENSIVE STAGE
     Dosage: 100 MG, UNK
     Route: 042
     Dates: start: 20170626, end: 20170724
  3. BLINDED NIVOLUMAB [Suspect]
     Active Substance: NIVOLUMAB
     Indication: SMALL CELL LUNG CANCER EXTENSIVE STAGE
     Dosage: 100 MG, UNK
     Route: 042
     Dates: start: 20170626, end: 20170724

REACTIONS (1)
  - Enterocolitis [Unknown]

NARRATIVE: CASE EVENT DATE: 20170807
